FAERS Safety Report 8840664 (Version 2)
Quarter: 2012Q4

REPORT INFORMATION
  Report Type: 
  Country: JP (occurrence: JP)
  Receive Date: 20121015
  Receipt Date: 20121023
  Transmission Date: 20130627
  Serious: Yes (Hospitalization, Other)
  Sender: FDA-Public Use
  Company Number: PHHY2012JP090700

PATIENT
  Age: 67 Year
  Sex: Male

DRUGS (1)
  1. DICLOFENAC [Suspect]
     Indication: PAIN
     Dosage: 300 mg (12 tablet daily)
     Route: 048
     Dates: start: 201109, end: 201109

REACTIONS (5)
  - Glomerulosclerosis [Recovered/Resolved]
  - Nephrotic syndrome [Recovering/Resolving]
  - Renal impairment [Recovered/Resolved]
  - Oedema peripheral [Recovering/Resolving]
  - Incorrect dose administered [Recovering/Resolving]
